FAERS Safety Report 21190625 (Version 1)
Quarter: 2022Q3

REPORT INFORMATION
  Report Type: Spontaneous
  Country: US (occurrence: None)
  Receive Date: 20220809
  Receipt Date: 20220809
  Transmission Date: 20221027
  Serious: No
  Sender: FDA-Public Use
  Company Number: None

PATIENT
  Age: 52 Year
  Sex: Male
  Weight: 103.5 kg

DRUGS (4)
  1. PAXLOVID [Suspect]
     Active Substance: NIRMATRELVIR\RITONAVIR
     Indication: COVID-19
     Dosage: FREQUENCY : TWICE A DAY;?
     Route: 048
  2. ZINC [Concomitant]
     Active Substance: ZINC
  3. Vitamin C [Concomitant]
  4. Vitamin D [Concomitant]

REACTIONS (2)
  - Ageusia [None]
  - Taste disorder [None]

NARRATIVE: CASE EVENT DATE: 20220807
